FAERS Safety Report 18042671 (Version 1)
Quarter: 2020Q3

REPORT INFORMATION
  Report Type: Spontaneous
  Country: US (occurrence: US)
  Receive Date: 20200717
  Receipt Date: 20200717
  Transmission Date: 20201103
  Serious: Yes (Hospitalization)
  Sender: FDA-Public Use
  Company Number: None

PATIENT
  Sex: Male
  Weight: 85.1 kg

DRUGS (5)
  1. DEXAMETHASONE. [Suspect]
     Active Substance: DEXAMETHASONE
     Indication: PRODUCT USED FOR UNKNOWN INDICATION
     Dates: end: 20200626
  2. VINCRISTINE SULFATE. [Suspect]
     Active Substance: VINCRISTINE SULFATE
     Dates: end: 20200619
  3. CYTARABINE. [Suspect]
     Active Substance: CYTARABINE
     Dates: end: 20200619
  4. ONCASPAR [Suspect]
     Active Substance: PEGASPARGASE
     Dates: end: 20200622
  5. DAUNORUBICINE (DAUNORUBICINE) [Suspect]
     Active Substance: DAUNORUBICIN
     Dates: end: 20200619

REACTIONS (3)
  - Hypocalcaemia [None]
  - Electrocardiogram QT prolonged [None]
  - Hypercalcaemia [None]

NARRATIVE: CASE EVENT DATE: 20200623
